FAERS Safety Report 13855570 (Version 2)
Quarter: 2017Q3

REPORT INFORMATION
  Report Type: Spontaneous
  Country: US (occurrence: US)
  Receive Date: 20170810
  Receipt Date: 20170925
  Transmission Date: 20171127
  Serious: No
  Sender: FDA-Public Use
  Company Number: US-PFIZER INC-2016427050

PATIENT
  Age: 15 Year
  Sex: Male
  Weight: 49.9 kg

DRUGS (5)
  1. GENOTROPIN [Suspect]
     Active Substance: SOMATROPIN
     Indication: WEIGHT DECREASED
  2. GENOTROPIN [Suspect]
     Active Substance: SOMATROPIN
     Indication: GROWTH HORMONE DEFICIENCY
  3. PROGRAF [Concomitant]
     Active Substance: TACROLIMUS\TACROLIMUS ANHYDROUS
     Indication: PROTEINURIA
     Dosage: 3 MG, 2X/DAY (ONE IN THE MORNING AND ONE AT NIGHT)
     Route: 048
     Dates: start: 2014
  4. GENOTROPIN [Suspect]
     Active Substance: SOMATROPIN
     Indication: GROWTH RETARDATION
     Dosage: 2.1 MG, DAILY (EVERY NIGHT)
     Dates: start: 201307
  5. OMNITROPE [Concomitant]
     Active Substance: SOMATROPIN
     Dosage: 2 MG, DAILY
     Route: 030

REACTIONS (5)
  - Incorrect dose administered [Not Recovered/Not Resolved]
  - Drug dose omission [Unknown]
  - Drug prescribing error [Unknown]
  - Headache [Unknown]
  - Arthralgia [Recovering/Resolving]
